FAERS Safety Report 25269299 (Version 1)
Quarter: 2025Q2

REPORT INFORMATION
  Report Type: Spontaneous
  Country: US (occurrence: None)
  Receive Date: 20250505
  Receipt Date: 20250505
  Transmission Date: 20250716
  Serious: No
  Sender: FDA-CTU
  Company Number: None

PATIENT
  Age: 78 Year
  Sex: Female

DRUGS (2)
  1. OTEZLA [Suspect]
     Active Substance: APREMILAST
  2. OTEZLA [Concomitant]
     Active Substance: APREMILAST
     Dates: start: 20250428, end: 20250504

REACTIONS (2)
  - Diarrhoea [None]
  - Rhinorrhoea [None]

NARRATIVE: CASE EVENT DATE: 20250505
